FAERS Safety Report 5736067-8 (Version None)
Quarter: 2008Q2

REPORT INFORMATION
  Report Type: 
  Country: None (occurrence: None)
  Receive Date: 20080513
  Receipt Date: 20080502
  Transmission Date: 20081010
  Serious: Yes (Other)
  Sender: FDA-Public Use
  Company Number: US-ROCHE-562202

PATIENT
  Age: 26 Year
  Sex: Male

DRUGS (2)
  1. ACCUTANE [Suspect]
     Indication: ACNE
     Dosage: THERAPY WAS STOPPED FOR TWO WEEKS.
     Route: 065
     Dates: start: 20071001, end: 20080301
  2. ACCUTANE [Suspect]
     Dosage: DOSE WOULD BE LOWERED
     Route: 065
     Dates: start: 20080301

REACTIONS (3)
  - BLOOD PRESSURE INCREASED [None]
  - BLOOD TRIGLYCERIDES INCREASED [None]
  - BRONCHITIS [None]
